FAERS Safety Report 5854947-X (Version None)
Quarter: 2008Q3

REPORT INFORMATION
  Report Type: 
  Country: None (occurrence: None)
  Receive Date: 20080822
  Receipt Date: 20080407
  Transmission Date: 20090109
  Serious: No
  Sender: FDA-Public Use
  Company Number: US-ABBOTT-08P-163-0446445-00

PATIENT
  Sex: Female
  Weight: 79.45 kg

DRUGS (4)
  1. SYNTHROID [Suspect]
     Indication: HYPOTHYROIDISM
     Route: 048
     Dates: start: 20080405
  2. PEPCIDDUAL [Concomitant]
     Indication: GASTROOESOPHAGEAL REFLUX DISEASE
     Dates: start: 20040101
  3. LORATADINE [Concomitant]
     Indication: HYPERSENSITIVITY
     Dates: start: 20070401
  4. CLONAZEPAM [Concomitant]
     Indication: TEMPOROMANDIBULAR JOINT SYNDROME
     Dates: start: 20001001

REACTIONS (1)
  - ASTHENIA [None]
